FAERS Safety Report 4378219-8 (Version None)
Quarter: 2004Q2

REPORT INFORMATION
  Report Type: 
  Country: None (occurrence: None)
  Receive Date: 20040616
  Receipt Date: 20040602
  Transmission Date: 20050107
  Serious: Yes (Death, Hospitalization)
  Sender: FDA-Public Use
  Company Number: LU-AMGEN-US080025

PATIENT
  Sex: Male

DRUGS (8)
  1. ENBREL [Suspect]
     Indication: RHEUMATOID ARTHRITIS
     Route: 058
     Dates: start: 20010801, end: 20030801
  2. VOLTAREN [Concomitant]
     Dates: start: 20010901
  3. CALCORT [Concomitant]
     Dates: start: 19981001
  4. LEDERTREXATE [Concomitant]
     Dates: start: 19920401
  5. SPECIAFOLDINE [Concomitant]
     Dates: start: 19930401
  6. FOSAMAX [Concomitant]
     Dates: start: 19890101
  7. CALCIUM CARBONATE [Concomitant]
     Dates: start: 20010101
  8. COLECALCIFEROL [Concomitant]
     Dates: start: 20010101

REACTIONS (2)
  - INTERVERTEBRAL DISCITIS [None]
  - STAPHYLOCOCCAL INFECTION [None]
